FAERS Safety Report 4451957-4 (Version None)
Quarter: 2004Q3

REPORT INFORMATION
  Report Type: 
  Country: None (occurrence: None)
  Receive Date: 20040917
  Receipt Date: 20020128
  Transmission Date: 20050211
  Serious: Yes (Hospitalization)
  Sender: FDA-Public Use
  Company Number: US-BRISTOL-MYERS SQUIBB COMPANY-11695962

PATIENT
  Age: 65 Year
  Sex: Male
  Weight: 119 kg

DRUGS (4)
  1. METFORMIN HCL [Suspect]
     Indication: DIABETES MELLITUS
     Route: 048
     Dates: start: 20000404, end: 20011122
  2. ENALAPRIL [Suspect]
     Indication: HYPERTENSION
     Route: 048
     Dates: start: 19970311, end: 20011122
  3. CO-CODAMOL [Suspect]
     Route: 048
     Dates: end: 20011118
  4. GINKGO BILOBA [Suspect]
     Route: 048
     Dates: start: 20011115, end: 20011118

REACTIONS (1)
  - ANAEMIA HAEMOLYTIC AUTOIMMUNE [None]
